FAERS Safety Report 18682282 (Version 1)
Quarter: 2020Q4

REPORT INFORMATION
  Report Type: Spontaneous
  Country: US (occurrence: US)
  Receive Date: 20201229
  Receipt Date: 20201229
  Transmission Date: 20210114
  Serious: Yes (Other)
  Sender: FDA-Public Use
  Company Number: None

PATIENT
  Sex: Male

DRUGS (1)
  1. OLANZAPINE 15MG [Suspect]
     Active Substance: OLANZAPINE

REACTIONS (3)
  - Weight increased [None]
  - Somnambulism [None]
  - Sleep-related eating disorder [None]
